FAERS Safety Report 17731247 (Version 2)
Quarter: 2020Q2

REPORT INFORMATION
  Report Type: Report from Study
  Country: US (occurrence: US)
  Receive Date: 20200430
  Receipt Date: 20200508
  Transmission Date: 20200714
  Serious: Yes (Hospitalization)
  Sender: FDA-Public Use
  Company Number: US-ACTELION-A-NJ2019-187979

PATIENT
  Sex: Female
  Weight: 79.37 kg

DRUGS (5)
  1. UPTRAVI [Suspect]
     Active Substance: SELEXIPAG
     Indication: PULMONARY ARTERIAL HYPERTENSION
     Dosage: 1200 MCG, BID
     Route: 048
  2. ADEMPAS [Concomitant]
     Active Substance: RIOCIGUAT
  3. DILTIAZEM. [Concomitant]
     Active Substance: DILTIAZEM
  4. XARELTO [Concomitant]
     Active Substance: RIVAROXABAN
  5. OPSUMIT [Suspect]
     Active Substance: MACITENTAN
     Indication: PULMONARY ARTERIAL HYPERTENSION
     Dosage: 10 MG, QD
     Route: 048
     Dates: end: 202001

REACTIONS (4)
  - Asthenia [Unknown]
  - Hypotension [Unknown]
  - Musculoskeletal disorder [Unknown]
  - Peripheral swelling [Unknown]
